FAERS Safety Report 4805697-X (Version None)
Quarter: 2005Q4

REPORT INFORMATION
  Report Type: 
  Country: None (occurrence: None)
  Receive Date: 20051021
  Receipt Date: 20050919
  Transmission Date: 20060501
  Serious: Yes (Life-Threatening, Hospitalization)
  Sender: FDA-Public Use
  Company Number: FR-ROCHE-418070

PATIENT
  Age: 46 Year
  Sex: Male
  Weight: 66.4 kg

DRUGS (10)
  1. DACLIZUMAB [Suspect]
     Dosage: GIVEN ON D0, AS PER PROTOCOL.
     Route: 042
     Dates: start: 20050724, end: 20050724
  2. DACLIZUMAB [Suspect]
     Dosage: GIVEN ON D14, AS PER PROTOCOL.
     Route: 042
     Dates: start: 20050808, end: 20050808
  3. MYCOPHENOLATE MOFETIL [Suspect]
     Route: 048
     Dates: start: 20050724
  4. CYCLOSPORINE [Suspect]
     Route: 048
     Dates: start: 20050727
  5. CORTANCYL [Suspect]
     Route: 048
     Dates: start: 20050724
  6. MOPRAL [Concomitant]
     Dates: start: 20050724
  7. BACTRIM DS [Concomitant]
     Dates: start: 20050724
  8. SECTRAL [Concomitant]
     Dates: start: 20050724
  9. AMLOR [Concomitant]
     Dates: start: 20050724
  10. PHOSPHONEUROS [Concomitant]
     Dates: start: 20050811

REACTIONS (4)
  - GASTROINTESTINAL DISORDER [None]
  - KLEBSIELLA SEPSIS [None]
  - PYELONEPHRITIS [None]
  - SEPSIS [None]
